FAERS Safety Report 7166676-3 (Version None)
Quarter: 2010Q4

REPORT INFORMATION
  Report Type: 
  Country: None (occurrence: None)
  Receive Date: 20101216
  Receipt Date: 20101210
  Transmission Date: 20110411
  Serious: Yes (Hospitalization)
  Sender: FDA-Public Use
  Company Number: FR-SANOFI-AVENTIS-2010SA074758

PATIENT
  Age: 32 Year
  Sex: Female

DRUGS (14)
  1. STILNOX [Suspect]
     Indication: SLEEP DISORDER
     Route: 048
     Dates: end: 20101106
  2. ENDOXAN [Suspect]
     Route: 042
     Dates: start: 20101104, end: 20101104
  3. SOLU-MEDROL [Suspect]
     Route: 042
     Dates: start: 20101028, end: 20101031
  4. STROMECTOL [Suspect]
     Route: 048
     Dates: start: 20101029, end: 20101030
  5. ONDANSETRON [Suspect]
     Route: 042
     Dates: start: 20101104, end: 20101105
  6. UROMITEXAN [Concomitant]
     Route: 042
     Dates: start: 20101104, end: 20101105
  7. PLAQUENIL [Concomitant]
     Indication: SYSTEMIC LUPUS ERYTHEMATOSUS
     Route: 065
  8. ALPRAZOLAM [Concomitant]
     Route: 065
  9. CELLUVISC [Concomitant]
     Route: 065
  10. BACTRIM [Concomitant]
     Route: 065
  11. VALACICLOVIR [Concomitant]
     Route: 065
  12. CRESTOR [Concomitant]
     Route: 065
  13. CACIT D3 [Concomitant]
     Route: 065
  14. DIFFU K [Concomitant]
     Route: 065

REACTIONS (1)
  - CYTOLYTIC HEPATITIS [None]
